FAERS Safety Report 16908464 (Version 2)
Quarter: 2019Q4

REPORT INFORMATION
  Report Type: Report from Study
  Country: CA (occurrence: CA)
  Receive Date: 20191011
  Receipt Date: 20191011
  Transmission Date: 20200122
  Serious: Yes (Other)
  Sender: FDA-Public Use
  Company Number: CA-PFIZER INC-2019437822

PATIENT
  Age: 68 Year
  Sex: Female

DRUGS (5)
  1. LIPITOR [Suspect]
     Active Substance: ATORVASTATIN CALCIUM
     Indication: HYPOTHYROIDISM
     Dosage: UNK
     Route: 065
  2. GLEEVEC [Interacting]
     Active Substance: IMATINIB MESYLATE
     Indication: CHRONIC MYELOID LEUKAEMIA
     Dosage: 400 MG, 1X/DAY
     Route: 048
  3. LIPITOR [Interacting]
     Active Substance: ATORVASTATIN CALCIUM
     Indication: HYPERTENSION
  4. METFORMIN HYDROCHLORIDE/SITAGLIPTIN PHOSPHATE MONOHYDRATE [Interacting]
     Active Substance: METFORMIN HYDROCHLORIDE\SITAGLIPTIN PHOSPHATE
     Indication: DIABETES MELLITUS
     Dosage: UNK
     Route: 065
  5. COVERSYL [PERINDOPRIL ERBUMINE] [Concomitant]
     Active Substance: PERINDOPRIL ERBUMINE
     Indication: BLOOD PRESSURE MEASUREMENT
     Dosage: UNK
     Route: 065

REACTIONS (24)
  - Nausea [Recovered/Resolved]
  - Diabetes mellitus [Recovered/Resolved]
  - Epistaxis [Recovered/Resolved]
  - Red blood cell count decreased [Recovered/Resolved]
  - Road traffic accident [Recovered/Resolved]
  - Muscle spasms [Recovered/Resolved]
  - Haematemesis [Recovered/Resolved]
  - Adenocarcinoma of colon [Recovered/Resolved]
  - Anaemia [Recovered/Resolved]
  - Drug interaction [Recovered/Resolved]
  - Haemoglobin decreased [Recovered/Resolved]
  - Large intestine polyp [Recovered/Resolved]
  - Colon adenoma [Recovered/Resolved]
  - Nasopharyngitis [Recovered/Resolved]
  - Blood cholesterol increased [Recovered/Resolved]
  - Thyroid disorder [Recovered/Resolved]
  - Weight decreased [Recovered/Resolved]
  - Malaise [Recovered/Resolved]
  - Limb discomfort [Recovered/Resolved]
  - Anxiety [Recovered/Resolved]
  - Red blood cell count increased [Recovered/Resolved]
  - Nervousness [Recovered/Resolved]
  - Renal failure [Recovered/Resolved]
  - Second primary malignancy [Recovered/Resolved]
